FAERS Safety Report 8369943-0 (Version None)
Quarter: 2012Q2

REPORT INFORMATION
  Report Type: 
  Country: None (occurrence: None)
  Receive Date: 20120518
  Receipt Date: 20120515
  Transmission Date: 20120825
  Serious: Yes (Hospitalization, Other)
  Sender: FDA-Public Use
  Company Number: US-PFIZER INC-2010023259

PATIENT
  Sex: Male

DRUGS (3)
  1. CHANTIX [Suspect]
     Indication: SMOKING CESSATION THERAPY
     Dosage: UNK
     Route: 048
     Dates: start: 20070601, end: 20070616
  2. SPIRIVA [Concomitant]
     Indication: DYSPNOEA
     Dosage: UNK
     Dates: start: 20051201, end: 20071001
  3. ACETYLSALICYLIC ACID [Concomitant]
     Indication: DYSPNOEA
     Dosage: UNK
     Dates: start: 20050201, end: 20071001

REACTIONS (8)
  - SUICIDE ATTEMPT [None]
  - DEPRESSION [None]
  - ABNORMAL BEHAVIOUR [None]
  - AMNESIA [None]
  - PANIC ATTACK [None]
  - MOOD SWINGS [None]
  - LOSS OF CONSCIOUSNESS [None]
  - AGGRESSION [None]
